FAERS Safety Report 9448064 (Version 1)
Quarter: 2013Q3

REPORT INFORMATION
  Report Type: Spontaneous
  Country: CA (occurrence: None)
  Receive Date: 20130806
  Receipt Date: 20130806
  Transmission Date: 20140515
  Serious: Yes (Hospitalization)
  Sender: FDA-Public Use
  Company Number: 2013AL000470

PATIENT
  Age: 94 Year
  Sex: Female

DRUGS (14)
  1. MACROBID [Suspect]
     Indication: PRODUCT USED FOR UNKNOWN INDICATION
     Route: 048
  2. MAVIK [Concomitant]
  3. POLYETHYLENE [Concomitant]
  4. GLYCOL [Concomitant]
  5. AMLODIPINE [Concomitant]
  6. CYANOCOBALAMIN [Concomitant]
  7. ATORVASTATIN [Concomitant]
  8. CLOPIDOGREL [Concomitant]
  9. LEVOTHYROXINE [Concomitant]
  10. LORAZEPAM [Concomitant]
  11. CALCIUM W/VITAMIN D NOS [Concomitant]
  12. FOSAVANCE [Concomitant]
  13. DOCUSATE SODIUM [Concomitant]
  14. FERROUS FUMARATE [Concomitant]

REACTIONS (4)
  - Syncope [None]
  - Hepatitis acute [None]
  - Mixed liver injury [None]
  - Hepatocellular injury [None]
